FAERS Safety Report 20146557 (Version 1)
Quarter: 2021Q4

REPORT INFORMATION
  Report Type: Spontaneous
  Country: US (occurrence: None)
  Receive Date: 20211203
  Receipt Date: 20211203
  Transmission Date: 20220303
  Serious: Yes (Other)
  Sender: FDA-Public Use
  Company Number: None

PATIENT
  Age: 35 Year
  Sex: Female

DRUGS (1)
  1. ETESEVIMAB [Suspect]
     Active Substance: ETESEVIMAB
     Indication: SARS-CoV-2 test positive
     Dosage: FREQUENCY : ONCE;?
     Route: 041
     Dates: start: 20211202, end: 20211202

REACTIONS (5)
  - Infusion related reaction [None]
  - Chest discomfort [None]
  - Nausea [None]
  - Retching [None]
  - Hyperhidrosis [None]

NARRATIVE: CASE EVENT DATE: 20211202
